FAERS Safety Report 16039260 (Version 1)
Quarter: 2019Q1

REPORT INFORMATION
  Report Type: Spontaneous
  Country: NL (occurrence: NL)
  Receive Date: 20190306
  Receipt Date: 20190306
  Transmission Date: 20190418
  Serious: Yes (Other)
  Sender: FDA-Public Use
  Company Number: NL-TEVA-2019-NL-1018531

PATIENT
  Age: 62 Year
  Sex: Female
  Weight: 70 kg

DRUGS (6)
  1. CALCIUM [Concomitant]
     Active Substance: CALCIUM
  2. VITAMIN D3 [Concomitant]
     Active Substance: CHOLECALCIFEROL
  3. MULTI VITAMINE [Concomitant]
  4. ASCAL 80 MG [Concomitant]
  5. AZITHROMYCINE 500MGAZITROMYCINE TABLET 500MG [Suspect]
     Active Substance: AZITHROMYCIN
     Indication: BRONCHIECTASIS
     Dosage: 3X WEEK  500MG
     Dates: start: 20160201
  6. PERSANTIN [Concomitant]
     Active Substance: DIPYRIDAMOLE

REACTIONS (3)
  - Keratoacanthoma [Unknown]
  - Photosensitivity reaction [Unknown]
  - Basal cell carcinoma [Unknown]

NARRATIVE: CASE EVENT DATE: 2016
